FAERS Safety Report 13692179 (Version 2)
Quarter: 2017Q3

REPORT INFORMATION
  Report Type: Spontaneous
  Country: US (occurrence: US)
  Receive Date: 20170627
  Receipt Date: 20170704
  Transmission Date: 20171127
  Serious: Yes (Death, Hospitalization)
  Sender: FDA-Public Use
  Company Number: US-CONCORDIA PHARMACEUTICALS INC.-GSH201706-003772

PATIENT
  Age: 89 Year
  Sex: Female

DRUGS (3)
  1. KAYEXALATE [Suspect]
     Active Substance: SODIUM POLYSTYRENE SULFONATE
     Indication: BLOOD POTASSIUM INCREASED
     Route: 048
  2. OXYGEN. [Concomitant]
     Active Substance: OXYGEN
  3. CIPROFLOXACIN. [Concomitant]
     Active Substance: CIPROFLOXACIN

REACTIONS (11)
  - Cardiac arrest [Fatal]
  - Multiple organ dysfunction syndrome [Fatal]
  - Lung infiltration [Unknown]
  - Acute respiratory distress syndrome [Fatal]
  - Lung consolidation [Unknown]
  - Shock [Fatal]
  - Hypoxia [Unknown]
  - Oxygen saturation decreased [Unknown]
  - Pulseless electrical activity [Unknown]
  - Blood pH decreased [Unknown]
  - PO2 decreased [Unknown]
